FAERS Safety Report 14114162 (Version 1)
Quarter: 2017Q4

REPORT INFORMATION
  Report Type: Spontaneous
  Country: ES (occurrence: ES)
  Receive Date: 20171023
  Receipt Date: 20171023
  Transmission Date: 20180321
  Serious: Yes (Other)
  Sender: FDA-Public Use
  Company Number: ES-JNJFOC-20171012374

PATIENT

DRUGS (2)
  1. IBUPROFEN. [Suspect]
     Active Substance: IBUPROFEN
     Indication: PRODUCT USED FOR UNKNOWN INDICATION
     Dosage: 19 PATIENTS RECEIVING 200 MG, 64 PATIENTS RECEIVED 400 MG AND 39 PATIENTS RECEIVED 600 MG
     Route: 048
  2. IBUPROFEN. [Suspect]
     Active Substance: IBUPROFEN
     Route: 048

REACTIONS (5)
  - Liver function test abnormal [Unknown]
  - Headache [Unknown]
  - Abdominal pain [Unknown]
  - Rash [Unknown]
  - Rhabdomyolysis [Unknown]
